FAERS Safety Report 16568154 (Version 2)
Quarter: 2019Q3

REPORT INFORMATION
  Report Type: Spontaneous
  Country: IN (occurrence: IN)
  Receive Date: 20190712
  Receipt Date: 20190813
  Transmission Date: 20191004
  Serious: Yes (Death, Other)
  Sender: FDA-Public Use
  Company Number: IN-PFIZER INC-2018445501

PATIENT
  Age: 56 Year
  Sex: Female
  Weight: 67.3 kg

DRUGS (5)
  1. LETROZOL [Concomitant]
     Active Substance: LETROZOLE
     Dosage: 2.5 MG, DAILY (IN THE MORNING 10:15-10:25 AM)
  2. OLEANZ [Concomitant]
     Active Substance: OLANZAPINE
     Dosage: 1 DF, 1X/DAY (1 TABLET ONCE BEFORE BED)
     Dates: start: 20190619
  3. ZOLDONAT [Concomitant]
     Dosage: UNK
  4. PALBACE [Suspect]
     Active Substance: PALBOCICLIB
     Indication: BREAST CANCER METASTATIC
     Dosage: 125 MG, 1X/DAY
     Route: 048
     Dates: start: 20180716
  5. PALBACE [Suspect]
     Active Substance: PALBOCICLIB
     Dosage: 125 MG, 1X/DAY
     Dates: start: 20180717

REACTIONS (4)
  - Blood creatinine increased [Unknown]
  - Type 2 diabetes mellitus [Unknown]
  - Death [Fatal]
  - Essential hypertension [Unknown]

NARRATIVE: CASE EVENT DATE: 201907
